FAERS Safety Report 20090402 (Version 1)
Quarter: 2021Q4

REPORT INFORMATION
  Report Type: Spontaneous
  Country: US (occurrence: None)
  Receive Date: 20211118
  Receipt Date: 20211118
  Transmission Date: 20220303
  Serious: Yes (Other)
  Sender: FDA-Public Use
  Company Number: None

PATIENT
  Age: 36 Year
  Sex: Male
  Weight: 80.1 kg

DRUGS (2)
  1. LOTRIMIN ANTIFUNGAL (MICONAZOLE NITRATE) [Suspect]
     Active Substance: MICONAZOLE NITRATE
     Indication: Tinea cruris
     Dates: start: 20210927, end: 20210927
  2. CENTRUM MULTIVITAMIN [Concomitant]

REACTIONS (2)
  - Sensory disturbance [None]
  - Application site pain [None]

NARRATIVE: CASE EVENT DATE: 20210927
